FAERS Safety Report 14297740 (Version 5)
Quarter: 2018Q1

REPORT INFORMATION
  Report Type: Report from Study
  Country: DE (occurrence: DE)
  Receive Date: 20171218
  Receipt Date: 20180314
  Transmission Date: 20180509
  Serious: Yes (Hospitalization)
  Sender: FDA-Public Use
  Company Number: DE-CELGENEUS-DEU-2016127852

PATIENT
  Age: 66 Year
  Sex: Female
  Weight: 35 kg

DRUGS (12)
  1. CARBOPLATIN. [Suspect]
     Active Substance: CARBOPLATIN
     Indication: NON-SMALL CELL LUNG CANCER
     Dosage: 6 MILLIGRAM/MILLILITERS
     Route: 041
     Dates: start: 20161208
  2. PALONOSETRON. [Concomitant]
     Active Substance: PALONOSETRON HYDROCHLORIDE
     Indication: PROPHYLACTIC CHEMOTHERAPY
     Dosage: .25 MILLIGRAM
     Route: 041
     Dates: start: 20161208, end: 20161208
  3. PALONOSETRON. [Concomitant]
     Active Substance: PALONOSETRON HYDROCHLORIDE
     Dosage: .25 MILLIGRAM
     Route: 041
     Dates: start: 20161215, end: 20161215
  4. BLOC ZOK MITE [Concomitant]
     Indication: HYPERTENSION
     Dosage: 23 MILLIGRAM
     Route: 048
     Dates: start: 2016
  5. THYROXIN [Concomitant]
     Active Substance: LEVOTHYROXINE
     Dosage: 75 MICROGRAM
     Route: 048
     Dates: start: 20161222
  6. FORTIMEL [Concomitant]
     Active Substance: DIETARY SUPPLEMENT
     Indication: CACHEXIA
     Route: 048
     Dates: start: 20161121, end: 201612
  7. SULTANOL [Concomitant]
     Active Substance: ALBUTEROL SULFATE
     Indication: CHRONIC OBSTRUCTIVE PULMONARY DISEASE
     Dosage: 18 MILLILITER
     Route: 055
     Dates: start: 20161121
  8. THYROXIN [Concomitant]
     Active Substance: LEVOTHYROXINE
     Indication: HYPOTHYROIDISM
     Dosage: 50 MICROGRAM
     Route: 048
     Dates: start: 2016, end: 20161221
  9. DEXAMETHASONE. [Concomitant]
     Active Substance: DEXAMETHASONE
     Indication: CHEMOTHERAPY
     Dosage: 20 MILLIGRAM
     Route: 058
     Dates: start: 20161208, end: 20161208
  10. NUTRICOMP DRINK PLUS [Concomitant]
     Indication: CACHEXIA
     Dosage: 800 MILLILITER
     Route: 048
     Dates: start: 20160110
  11. ABRAXANE [Suspect]
     Active Substance: PACLITAXEL
     Indication: NON-SMALL CELL LUNG CANCER
     Dosage: 100 MILLIGRAM/SQ. METER
     Route: 041
     Dates: start: 20161208
  12. ATROVENT [Concomitant]
     Active Substance: IPRATROPIUM BROMIDE
     Indication: CHRONIC OBSTRUCTIVE PULMONARY DISEASE
     Dosage: 7.5 MILLILITER
     Route: 055
     Dates: start: 20161121

REACTIONS (3)
  - Mucosal inflammation [Recovered/Resolved]
  - Anaemia [Recovered/Resolved]
  - Leukopenia [Recovered/Resolved]

NARRATIVE: CASE EVENT DATE: 20161215
